FAERS Safety Report 16486757 (Version 1)
Quarter: 2019Q3

REPORT INFORMATION
  Report Type: Spontaneous
  Country: US (occurrence: US)
  Receive Date: 20190625
  Receipt Date: 20190625
  Transmission Date: 20191004
  Serious: Yes (Hospitalization)
  Sender: FDA-Public Use
  Company Number: None

PATIENT
  Sex: Male

DRUGS (8)
  1. ACYCLOVIR. [Concomitant]
     Active Substance: ACYCLOVIR
  2. PROTONIX [Concomitant]
     Active Substance: PANTOPRAZOLE SODIUM
  3. SPRYCEL [Suspect]
     Active Substance: DASATINIB
     Indication: ACUTE LYMPHOCYTIC LEUKAEMIA
     Route: 048
     Dates: start: 20171018
  4. FENTANYL. [Concomitant]
     Active Substance: FENTANYL
  5. KEYTRUDA [Concomitant]
     Active Substance: PEMBROLIZUMAB
  6. NORITATE [Concomitant]
     Active Substance: METRONIDAZOLE
  7. OPDIVO [Concomitant]
     Active Substance: NIVOLUMAB
  8. OXYCODONE [Concomitant]
     Active Substance: OXYCODONE

REACTIONS (3)
  - Fall [None]
  - Movement disorder [None]
  - Adverse drug reaction [None]
